FAERS Safety Report 8501595-9 (Version None)
Quarter: 2012Q3

REPORT INFORMATION
  Report Type: 
  Country: None (occurrence: None)
  Receive Date: 20120710
  Receipt Date: 20120702
  Transmission Date: 20120928
  Serious: Yes (Hospitalization, Other)
  Sender: FDA-Public Use
  Company Number: JP-ROCHE-1023781

PATIENT
  Sex: Female
  Weight: 55 kg

DRUGS (19)
  1. PULMICORT [Concomitant]
     Dates: start: 20070723, end: 20110120
  2. ITRACONAZOLE [Concomitant]
     Dates: start: 20101119, end: 20101217
  3. XOLAIR [Suspect]
     Indication: ASTHMA
     Route: 058
     Dates: start: 20101119
  4. AMARYL [Concomitant]
     Dates: start: 20101119
  5. URSO 250 [Concomitant]
     Dates: start: 20101119
  6. ALBUTEROL SULFATE [Concomitant]
     Dates: start: 20070723
  7. NORVASC [Concomitant]
     Dates: start: 20101019
  8. FAMOTIDINE [Concomitant]
     Dates: start: 20101119
  9. XOLAIR [Suspect]
     Dates: start: 20110114
  10. HOKUNALIN [Concomitant]
     Dates: start: 20070723, end: 20110217
  11. SYMBICORT [Concomitant]
     Dates: start: 20110121
  12. ALVESCO [Concomitant]
     Dates: start: 20080711, end: 20110120
  13. MONTELUKAST SODIUM [Concomitant]
     Dates: start: 20070723
  14. THEOPHYLLINE [Concomitant]
  15. CRESTOR [Concomitant]
     Dates: start: 20101019
  16. XOLAIR [Suspect]
     Dates: start: 20110204
  17. XOLAIR [Suspect]
     Dates: start: 20110311, end: 20110617
  18. SEREVENT [Concomitant]
     Dates: start: 20070723, end: 20110120
  19. THEOPHYLLINE [Concomitant]
     Dates: start: 20070723

REACTIONS (2)
  - ASTHMA [None]
  - LIVER DISORDER [None]
